FAERS Safety Report 18368686 (Version 1)
Quarter: 2020Q4

REPORT INFORMATION
  Report Type: Report from Study
  Country: None (occurrence: US)
  Receive Date: 20201010
  Receipt Date: 20201010
  Transmission Date: 20210114
  Serious: Yes (Hospitalization, Other)
  Sender: FDA-Public Use
  Company Number: US-ABBVIE-20K-163-3505415-00

PATIENT
  Age: 53 Year
  Sex: Male
  Weight: 108.05 kg

DRUGS (2)
  1. HUMIRA [Suspect]
     Active Substance: ADALIMUMAB
     Indication: PSORIATIC ARTHROPATHY
     Dosage: CITRATE FREE
     Route: 058
  2. HUMIRA [Suspect]
     Active Substance: ADALIMUMAB
     Indication: HIDRADENITIS
     Dosage: CITRATE FREE
     Route: 058
     Dates: start: 20200228

REACTIONS (7)
  - Arthralgia [Not Recovered/Not Resolved]
  - Palpitations [Recovering/Resolving]
  - Condition aggravated [Not Recovered/Not Resolved]
  - Myocardial infarction [Recovering/Resolving]
  - Contusion [Recovering/Resolving]
  - Coronary artery occlusion [Unknown]
  - Hidradenitis [Recovering/Resolving]

NARRATIVE: CASE EVENT DATE: 2020
